FAERS Safety Report 16652005 (Version 4)
Quarter: 2020Q3

REPORT INFORMATION
  Report Type: Spontaneous
  Country: US (occurrence: US)
  Receive Date: 20190731
  Receipt Date: 20200713
  Transmission Date: 20201102
  Serious: Yes (Other)
  Sender: FDA-Public Use
  Company Number: US-PFIZER INC-2019324309

PATIENT
  Age: 69 Year
  Sex: Female

DRUGS (2)
  1. IBRANCE [Suspect]
     Active Substance: PALBOCICLIB
     Dosage: 125 MG, CYCLIC (EVERY DAY X 21 DAYS, 7 OFF)
     Route: 048
  2. IBRANCE [Suspect]
     Active Substance: PALBOCICLIB
     Dosage: 125 MG, CYCLIC (DAILY X21 DAYS THEN 7 DAYS OFF)
     Route: 048

REACTIONS (5)
  - Product dose omission issue [Unknown]
  - Neutrophil count decreased [Unknown]
  - Platelet count decreased [Not Recovered/Not Resolved]
  - Eructation [Unknown]
  - Abdominal discomfort [Unknown]
